FAERS Safety Report 17676578 (Version 3)
Quarter: 2020Q3

REPORT INFORMATION
  Report Type: Report from Study
  Country: None (occurrence: US)
  Receive Date: 20200416
  Receipt Date: 20200706
  Transmission Date: 20201102
  Serious: No
  Sender: FDA-Public Use
  Company Number: US-BIOVITRUM-2020US1374

PATIENT
  Age: 8 Year
  Sex: Male

DRUGS (2)
  1. KINERET [Suspect]
     Active Substance: ANAKINRA
     Indication: STILL^S DISEASE
     Route: 058
     Dates: start: 20200226
  2. LORATADINE. [Concomitant]
     Active Substance: LORATADINE

REACTIONS (8)
  - Injection site swelling [Unknown]
  - Off label use [Recovered/Resolved]
  - Injection site erythema [Unknown]
  - Injection site warmth [Unknown]
  - Hypersensitivity [Unknown]
  - Injection site reaction [Unknown]
  - Injection site pain [Unknown]
  - Contusion [Unknown]

NARRATIVE: CASE EVENT DATE: 20200226
